FAERS Safety Report 14046284 (Version 5)
Quarter: 2018Q2

REPORT INFORMATION
  Report Type: Report from Study
  Country: US (occurrence: US)
  Receive Date: 20171005
  Receipt Date: 20180521
  Transmission Date: 20180711
  Serious: Yes (Other)
  Sender: FDA-Public Use
  Company Number: US-TESARO, INC-US-2017TSO02202

PATIENT

DRUGS (4)
  1. ZEJULA [Suspect]
     Active Substance: NIRAPARIB
     Indication: OVARIAN CANCER
     Dosage: 300 MG, QPM
     Route: 048
     Dates: start: 20170725
  2. ZEJULA [Suspect]
     Active Substance: NIRAPARIB
     Dosage: 100 MG, QD
     Route: 048
  3. ZEJULA [Suspect]
     Active Substance: NIRAPARIB
     Dosage: 300 MG, QD
  4. ZEJULA [Suspect]
     Active Substance: NIRAPARIB
     Indication: MALIGNANT PERITONEAL NEOPLASM
     Dosage: 200 MG, QD (WITHOUT FOOD)
     Route: 048
     Dates: start: 20170825

REACTIONS (22)
  - Haemoglobin decreased [Not Recovered/Not Resolved]
  - Osteopenia [Unknown]
  - Stomatitis [Not Recovered/Not Resolved]
  - Blood count abnormal [Unknown]
  - Pain [Not Recovered/Not Resolved]
  - Peripheral coldness [Unknown]
  - Nausea [Not Recovered/Not Resolved]
  - Ulcer [Unknown]
  - Osteoporosis [Unknown]
  - Asthenia [Unknown]
  - Transfusion reaction [Not Recovered/Not Resolved]
  - Toxicity to various agents [Not Recovered/Not Resolved]
  - Hypothyroidism [Not Recovered/Not Resolved]
  - Pallor [Unknown]
  - Platelet count decreased [Not Recovered/Not Resolved]
  - Feeding disorder [Not Recovered/Not Resolved]
  - Adverse event [Unknown]
  - Weight decreased [Not Recovered/Not Resolved]
  - Pharyngeal oedema [Not Recovered/Not Resolved]
  - Skin cancer [Unknown]
  - Lip swelling [Not Recovered/Not Resolved]
  - Unevaluable event [Unknown]

NARRATIVE: CASE EVENT DATE: 20170730
